FAERS Safety Report 24819182 (Version 1)
Quarter: 2025Q1

REPORT INFORMATION
  Report Type: Spontaneous
  Country: US (occurrence: US)
  Receive Date: 20250108
  Receipt Date: 20250108
  Transmission Date: 20250409
  Serious: Yes (Other)
  Sender: BAXTER
  Company Number: US-MLMSERVICE-20241226-PI324567-00222-1

PATIENT
  Age: 66 Year
  Sex: Female

DRUGS (4)
  1. METRONIDAZOLE [Suspect]
     Active Substance: METRONIDAZOLE
     Indication: Prophylaxis
     Route: 042
  2. CEFTRIAXONE [Concomitant]
     Active Substance: CEFTRIAXONE
     Indication: Prophylaxis
     Route: 065
  3. CYCLOPHOSPHAMIDE [Concomitant]
     Active Substance: CYCLOPHOSPHAMIDE
     Indication: Breast cancer
     Route: 065
  4. DOCETAXEL [Concomitant]
     Active Substance: DOCETAXEL
     Indication: Breast cancer
     Route: 065

REACTIONS (6)
  - Hallucination, visual [Recovered/Resolved]
  - Insomnia [Unknown]
  - Feeling of despair [Unknown]
  - Apathy [Unknown]
  - Asthenia [Unknown]
  - Disturbance in attention [Unknown]
